FAERS Safety Report 7412575-9 (Version None)
Quarter: 2011Q2

REPORT INFORMATION
  Report Type: 
  Country: None (occurrence: None)
  Receive Date: 20110413
  Receipt Date: 20110406
  Transmission Date: 20111010
  Serious: Yes (Other)
  Sender: FDA-Public Use
  Company Number: US-JNJFOC-20100207134

PATIENT
  Age: 66 Year
  Sex: Male
  Weight: 81.65 kg

DRUGS (9)
  1. EXTRA STRENGTH TYLENOL [Suspect]
     Indication: HEADACHE
     Route: 048
  2. EXTRA STRENGTH TYLENOL [Suspect]
     Route: 048
  3. JANUVIA [Concomitant]
     Indication: ILL-DEFINED DISORDER
     Route: 048
  4. JANUMET [Concomitant]
     Indication: DIABETES MELLITUS
     Dosage: 50/500 MG DAILY
     Route: 048
  5. NEXIUM [Concomitant]
     Indication: ILL-DEFINED DISORDER
     Route: 048
  6. EXTRA STRENGTH TYLENOL [Suspect]
     Route: 048
  7. JANUMET [Concomitant]
     Dosage: DRUG STRENGTH 50/500
     Route: 048
  8. EXTRA STRENGTH TYLENOL [Suspect]
     Route: 048
  9. GLIPIZIDE [Concomitant]
     Indication: ILL-DEFINED DISORDER
     Route: 048

REACTIONS (3)
  - DRUG HYPERSENSITIVITY [None]
  - NAUSEA [None]
  - PRODUCT QUALITY ISSUE [None]
